FAERS Safety Report 13687704 (Version 1)
Quarter: 2017Q2

REPORT INFORMATION
  Report Type: Spontaneous
  Country: US (occurrence: US)
  Receive Date: 20170625
  Receipt Date: 20170625
  Transmission Date: 20170830
  Serious: Yes (Other)
  Sender: FDA-Public Use
  Company Number: PHEH2017US018728

PATIENT
  Age: 63 Year
  Sex: Female
  Weight: 51.25 kg

DRUGS (2)
  1. PAXIL [Concomitant]
     Active Substance: PAROXETINE HYDROCHLORIDE
     Indication: PRODUCT USED FOR UNKNOWN INDICATION
     Dosage: 20 MG, QD (ONCE DAILY)
     Route: 048
  2. EXELON PATCH [Suspect]
     Active Substance: RIVASTIGMINE
     Indication: DEMENTIA ALZHEIMER^S TYPE
     Dosage: 4.6 MG, QD PATCH 5 (CM2)
     Route: 003
     Dates: start: 20170522, end: 20170610

REACTIONS (6)
  - Skin wound [Not Recovered/Not Resolved]
  - Infection [Unknown]
  - Scar [Unknown]
  - Pruritus [Unknown]
  - Erythema [Unknown]
  - Burning sensation [Unknown]

NARRATIVE: CASE EVENT DATE: 20170610
